FAERS Safety Report 8611435-5 (Version None)
Quarter: 2012Q3

REPORT INFORMATION
  Report Type: 
  Country: None (occurrence: None)
  Receive Date: 20120822
  Receipt Date: 20120814
  Transmission Date: 20120928
  Serious: Yes (Hospitalization)
  Sender: FDA-Public Use
  Company Number: US-B.I. PHARMACEUTICALS,INC./RIDGEFIELD-2012-BP-19963BP

PATIENT
  Sex: Female

DRUGS (3)
  1. LEVOTHYROXINE SODIUM [Concomitant]
     Indication: THYROID DISORDER
     Dosage: 50 MCG
     Route: 048
     Dates: start: 20070101
  2. PRADAXA [Suspect]
     Indication: ATRIAL FIBRILLATION
     Dosage: 300 MG
     Route: 048
     Dates: start: 20120601, end: 20120701
  3. ADVIL [Suspect]
     Indication: ARTHRITIS
     Route: 048
     Dates: start: 20110101, end: 20120701

REACTIONS (2)
  - ASTHENIA [None]
  - GASTRIC HAEMORRHAGE [None]
